FAERS Safety Report 4569648-8 (Version None)
Quarter: 2005Q1

REPORT INFORMATION
  Report Type: 
  Country: None (occurrence: None)
  Receive Date: 20050201
  Receipt Date: 20050120
  Transmission Date: 20050727
  Serious: Yes (Other)
  Sender: FDA-Public Use
  Company Number: GB-SHR-04-019531

PATIENT
  Sex: Female

DRUGS (1)
  1. MIRENA [Suspect]
     Dosage: 20 UG, CONT, INTRA-UTERINE
     Route: 015

REACTIONS (4)
  - ANOREXIA [None]
  - EATING DISORDER [None]
  - NAUSEA [None]
  - WEIGHT DECREASED [None]
